FAERS Safety Report 7931489-9 (Version None)
Quarter: 2011Q4

REPORT INFORMATION
  Report Type: 
  Country: None (occurrence: None)
  Receive Date: 20111121
  Receipt Date: 20111121
  Transmission Date: 20120403
  Serious: Yes (Hospitalization, Other)
  Sender: FDA-Public Use
  Company Number: None

PATIENT
  Age: 46 Year
  Sex: Male
  Weight: 120.2 kg

DRUGS (2)
  1. CIPRO [Suspect]
     Indication: PROSTATITIS
     Dosage: 500 MG.
     Route: 048
     Dates: start: 19870101, end: 20101031
  2. LEVAQUIN [Concomitant]
     Indication: PROSTATITIS
     Dosage: 500 MG. ?
     Route: 048
     Dates: start: 20010101, end: 20051231

REACTIONS (25)
  - CONSTIPATION [None]
  - EMOTIONAL DISTRESS [None]
  - NEUROPATHY PERIPHERAL [None]
  - AMNESIA [None]
  - COGNITIVE DISORDER [None]
  - ROTATOR CUFF SYNDROME [None]
  - PERIPHERAL NERVE LESION [None]
  - NERVE INJURY [None]
  - CONFUSIONAL STATE [None]
  - TYPE 2 DIABETES MELLITUS [None]
  - IMPAIRED WORK ABILITY [None]
  - TINNITUS [None]
  - MYALGIA [None]
  - CHOLECYSTECTOMY [None]
  - ANXIETY [None]
  - PAIN [None]
  - HEPATOMEGALY [None]
  - ALANINE AMINOTRANSFERASE INCREASED [None]
  - FATIGUE [None]
  - ARTHRALGIA [None]
  - HEADACHE [None]
  - HYPERTENSION [None]
  - TENDON RUPTURE [None]
  - NEUROMA [None]
  - ASPARTATE AMINOTRANSFERASE INCREASED [None]
